FAERS Safety Report 14853766 (Version 1)
Quarter: 2018Q2

REPORT INFORMATION
  Report Type: Spontaneous
  Country: US (occurrence: US)
  Receive Date: 20180507
  Receipt Date: 20180507
  Transmission Date: 20180711
  Serious: No
  Sender: FDA-Public Use
  Company Number: US-ALLERGAN-1734910US

PATIENT
  Sex: Female

DRUGS (3)
  1. ZYMAXID [Suspect]
     Active Substance: GATIFLOXACIN
     Indication: EYE DISORDER
     Dosage: UNK
     Route: 047
     Dates: start: 20110927
  2. ZYMAXID [Suspect]
     Active Substance: GATIFLOXACIN
     Dosage: UNK
     Route: 047
     Dates: start: 20111014
  3. CIPRO [Concomitant]
     Active Substance: CIPROFLOXACIN HYDROCHLORIDE
     Indication: PRODUCT USED FOR UNKNOWN INDICATION
     Dosage: UNK

REACTIONS (2)
  - Gait disturbance [Unknown]
  - Neuropathy peripheral [Unknown]
